FAERS Safety Report 17569693 (Version 1)
Quarter: 2020Q1

REPORT INFORMATION
  Report Type: Spontaneous
  Country: US (occurrence: US)
  Receive Date: 20200323
  Receipt Date: 20200323
  Transmission Date: 20200409
  Serious: No
  Sender: FDA-Public Use
  Company Number: US-BIOGEN-2020BI00852688

PATIENT
  Age: 34 Year
  Sex: Female
  Weight: 62.2 kg

DRUGS (1)
  1. TECFIDERA [Suspect]
     Active Substance: DIMETHYL FUMARATE
     Indication: MULTIPLE SCLEROSIS
     Route: 048
     Dates: start: 20180304

REACTIONS (1)
  - Muscle fatigue [Unknown]

NARRATIVE: CASE EVENT DATE: 20200304
